FAERS Safety Report 13839531 (Version 1)
Quarter: 2017Q3

REPORT INFORMATION
  Report Type: Spontaneous
  Country: US (occurrence: US)
  Receive Date: 20170807
  Receipt Date: 20170807
  Transmission Date: 20171127
  Serious: No
  Sender: FDA-Public Use
  Company Number: US-BAYER-2017-150311

PATIENT
  Age: 74 Year
  Sex: Female

DRUGS (1)
  1. LOTRIMIN ULTRA ANTIFUNGAL [Suspect]
     Active Substance: BUTENAFINE HYDROCHLORIDE
     Indication: THERAPEUTIC SKIN CARE TOPICAL
     Dosage: UNK UNK,(ONE DOSE ONCE A DAY)
     Route: 061
     Dates: start: 20170804, end: 20170804

REACTIONS (2)
  - Off label use [Unknown]
  - Product use in unapproved indication [Unknown]

NARRATIVE: CASE EVENT DATE: 20170804
